FAERS Safety Report 7072383-8 (Version None)
Quarter: 2010Q4

REPORT INFORMATION
  Report Type: 
  Country: None (occurrence: None)
  Receive Date: 20101029
  Receipt Date: 20100312
  Transmission Date: 20110411
  Serious: No
  Sender: FDA-Public Use
  Company Number: A0840309A

PATIENT
  Age: 65 Year
  Sex: Female

DRUGS (5)
  1. ADVAIR DISKUS 100/50 [Suspect]
     Route: 055
  2. ADVAIR DISKUS 100/50 [Suspect]
     Route: 055
     Dates: start: 20100101
  3. SPIRIVA [Concomitant]
  4. ALBUTEROL [Concomitant]
  5. OXYGEN [Concomitant]

REACTIONS (5)
  - DRUG INEFFECTIVE [None]
  - DYSGEUSIA [None]
  - DYSPNOEA [None]
  - PRODUCT QUALITY ISSUE [None]
  - UNDERDOSE [None]
